FAERS Safety Report 5821482-4 (Version None)
Quarter: 2008Q3

REPORT INFORMATION
  Report Type: 
  Country: None (occurrence: None)
  Receive Date: 20080724
  Receipt Date: 20080723
  Transmission Date: 20090109
  Serious: Yes (Hospitalization)
  Sender: FDA-Public Use
  Company Number: B0530320A

PATIENT
  Age: 65 Year
  Sex: Male

DRUGS (8)
  1. AVANDAMET [Suspect]
     Dates: end: 20080710
  2. ATORVASTATIN CALCIUM [Concomitant]
  3. WARFARIN SODIUM [Concomitant]
  4. GLICLAZIDE [Concomitant]
  5. CALCICHEW D3 [Concomitant]
  6. FINASTERIDE [Concomitant]
  7. LOSARTAN POTASSIUM [Concomitant]
  8. FUROSEMIDE [Concomitant]

REACTIONS (4)
  - ATRIAL FLUTTER [None]
  - CHEST PAIN [None]
  - DYSPNOEA [None]
  - PULMONARY OEDEMA [None]
